FAERS Safety Report 7167977-5 (Version None)
Quarter: 2010Q4

REPORT INFORMATION
  Report Type: 
  Country: None (occurrence: None)
  Receive Date: 20101216
  Receipt Date: 20101214
  Transmission Date: 20110411
  Serious: Yes (Other)
  Sender: FDA-Public Use
  Company Number: US-PFIZER INC-2010172071

PATIENT
  Sex: Female
  Weight: 90.7 kg

DRUGS (5)
  1. LYRICA [Suspect]
     Indication: MIGRAINE
     Dosage: 150 MG, 2X/DAY
     Route: 048
     Dates: start: 20101101
  2. LYRICA [Suspect]
     Dosage: 25MG/DAILY
     Dates: start: 20100301
  3. CYMBALTA [Concomitant]
     Indication: DEPRESSION
     Dosage: 60 MG, 1X/DAY
     Route: 048
  4. SIMVASTATIN [Concomitant]
     Indication: DYSLIPIDAEMIA
     Dosage: 20 MG, 1X/DAY
     Route: 048
  5. CLONAZEPAM [Concomitant]
     Indication: ANXIETY
     Dosage: 1 MG, 1X/DAY
     Route: 048

REACTIONS (1)
  - RASH [None]
